FAERS Safety Report 6261929-5 (Version None)
Quarter: 2009Q3

REPORT INFORMATION
  Report Type: 
  Country: None (occurrence: None)
  Receive Date: 20090709
  Receipt Date: 20090304
  Transmission Date: 20100115
  Serious: Yes (Death)
  Sender: FDA-Public Use
  Company Number: B0582774A

PATIENT
  Age: 82 Year
  Sex: Male
  Weight: 65 kg

DRUGS (6)
  1. OMACOR [Suspect]
     Dosage: 1000MG PER DAY
     Route: 048
     Dates: start: 20051231, end: 20061026
  2. ASPIRIN [Concomitant]
  3. LOW MOLECULAR HEPARIN [Concomitant]
  4. DIURETICS [Concomitant]
  5. UNKNOWN DRUG [Concomitant]
  6. STATINS [Concomitant]

REACTIONS (1)
  - ABDOMINAL NEOPLASM [None]
